FAERS Safety Report 5827753-X (Version None)
Quarter: 2008Q3

REPORT INFORMATION
  Report Type: 
  Country: None (occurrence: None)
  Receive Date: 20080728
  Receipt Date: 20080714
  Transmission Date: 20090109
  Serious: Yes (Other)
  Sender: FDA-Public Use
  Company Number: 100#08#2008-03685

PATIENT
  Age: 73 Year
  Sex: Female

DRUGS (1)
  1. ALENDRONATE SODIUM [Suspect]
     Indication: OSTEOPOROSIS
     Dosage: 10 MG, ORAL
     Route: 048

REACTIONS (5)
  - ARTHRITIS [None]
  - DIARRHOEA [None]
  - JOINT SWELLING [None]
  - NAUSEA [None]
  - REFUSAL OF TREATMENT BY PATIENT [None]
